FAERS Safety Report 7757950 (Version 3)
Quarter: 2012Q4

REPORT INFORMATION
  Report Type: 
  Country: FR (occurrence: FR)
  Receive Date: 20110112
  Receipt Date: 20120921
  Transmission Date: 20130627
  Serious: Yes (Hospitalization)
  Sender: FDA-Public Use
  Company Number: FR-ASTRAZENECA-2011SE00452

PATIENT
  Age: 20719 Day
  Sex: Male

DRUGS (7)
  1. INEXIUM [Suspect]
     Route: 048
     Dates: start: 201002, end: 20100330
  2. AUGMENTIN [Suspect]
     Route: 048
     Dates: start: 20100309, end: 20100330
  3. TRIFLUCAN [Concomitant]
     Route: 048
     Dates: start: 20100309, end: 20100330
  4. TRIFLUCAN [Concomitant]
     Route: 048
  5. ORACILLINE [Concomitant]
     Route: 048
     Dates: start: 200909, end: 20100330
  6. ORACILLINE [Concomitant]
     Route: 048
  7. ZELITREX [Concomitant]
     Route: 048
     Dates: start: 20100309

REACTIONS (1)
  - Stevens-Johnson syndrome [Recovered/Resolved with Sequelae]
